FAERS Safety Report 19586281 (Version 1)
Quarter: 2021Q3

REPORT INFORMATION
  Report Type: Spontaneous
  Country: US (occurrence: US)
  Receive Date: 20210721
  Receipt Date: 20210721
  Transmission Date: 20211014
  Serious: Yes (Hospitalization, Other)
  Sender: FDA-Public Use
  Company Number: US-SUN PHARMACEUTICAL INDUSTRIES LTD-2021R1-304487

PATIENT
  Age: 48 Year
  Sex: Female

DRUGS (1)
  1. METHADONE [Suspect]
     Active Substance: METHADONE HYDROCHLORIDE
     Indication: PRODUCT USED FOR UNKNOWN INDICATION
     Dosage: 30 MILLIGRAM, DAILY
     Route: 065

REACTIONS (8)
  - Accidental overdose [Unknown]
  - Mental status changes [Recovering/Resolving]
  - Stress cardiomyopathy [Recovering/Resolving]
  - Bradycardia [Recovering/Resolving]
  - Ventricular tachycardia [Recovering/Resolving]
  - Respiratory failure [Recovering/Resolving]
  - Electrocardiogram QT prolonged [Recovering/Resolving]
  - Normochromic anaemia [Recovering/Resolving]
